FAERS Safety Report 4339357-9 (Version None)
Quarter: 2004Q2

REPORT INFORMATION
  Report Type: 
  Country: None (occurrence: None)
  Receive Date: 20040414
  Receipt Date: 20040414
  Transmission Date: 20050107
  Serious: Yes (Hospitalization)
  Sender: FDA-Public Use
  Company Number: None

PATIENT
  Age: 58 Year
  Sex: Male
  Weight: 69.39 kg

DRUGS (3)
  1. PACERONE [Suspect]
     Indication: ARRHYTHMIA
     Dosage: 200 MG Q AM ORAL
     Route: 048
     Dates: start: 20030301, end: 20040321
  2. DIGOXIN [Suspect]
     Indication: ARRHYTHMIA
     Dosage: 0.125 MG EVERY OTHE ORAL
     Route: 048
     Dates: start: 20030301, end: 20040321
  3. COREG [Concomitant]

REACTIONS (5)
  - ATRIAL FLUTTER [None]
  - BRADYCARDIA [None]
  - DRUG INTOLERANCE [None]
  - HYPERSENSITIVITY [None]
  - VENTRICULAR DYSFUNCTION [None]
